FAERS Safety Report 7626018-3 (Version None)
Quarter: 2011Q3

REPORT INFORMATION
  Report Type: 
  Country: None (occurrence: None)
  Receive Date: 20110713
  Receipt Date: 20110705
  Transmission Date: 20111222
  Serious: Yes (Other)
  Sender: FDA-Public Use
  Company Number: JPI-P-015736

PATIENT
  Sex: Female
  Weight: 79.3795 kg

DRUGS (4)
  1. FLUOXETINE [Concomitant]
  2. XYREM [Suspect]
     Indication: NARCOLEPSY
     Dosage: 8 GM (4 GM,2 IN 1 D), ORAL ; 6 GM (3 GM,2 IN 1 D),ORAL
     Route: 048
     Dates: start: 20071026
  3. XYREM [Suspect]
     Indication: NARCOLEPSY
     Dosage: 8 GM (4 GM,2 IN 1 D), ORAL ; 6 GM (3 GM,2 IN 1 D),ORAL
     Route: 048
     Dates: start: 20070813
  4. METHYLPHENIDATE [Concomitant]

REACTIONS (1)
  - COMPLEX PARTIAL SEIZURES [None]
